FAERS Safety Report 14530587 (Version 1)
Quarter: 2018Q1

REPORT INFORMATION
  Report Type: Spontaneous
  Country: AU (occurrence: AU)
  Receive Date: 20180214
  Receipt Date: 20180214
  Transmission Date: 20180509
  Serious: Yes (Death, Hospitalization)
  Sender: FDA-Public Use
  Company Number: AU-CELGENEUS-AUS-20180201818

PATIENT
  Age: 64 Year
  Sex: Male

DRUGS (2)
  1. CLOPIDOGREL [Concomitant]
     Active Substance: CLOPIDOGREL BISULFATE
     Indication: ANTICOAGULANT THERAPY
     Route: 065
  2. THALIDOMIDE [Suspect]
     Active Substance: THALIDOMIDE
     Indication: WALDENSTROM^S MACROGLOBULINAEMIA
     Route: 048
     Dates: start: 200006

REACTIONS (5)
  - Progressive multifocal leukoencephalopathy [Fatal]
  - Pneumonia [Unknown]
  - Gastrointestinal haemorrhage [Unknown]
  - Cytomegalovirus gastritis [Unknown]
  - Pancytopenia [Unknown]

NARRATIVE: CASE EVENT DATE: 200006
